FAERS Safety Report 5651225-9 (Version None)
Quarter: 2008Q1

REPORT INFORMATION
  Report Type: 
  Country: None (occurrence: None)
  Receive Date: 20080305
  Receipt Date: 20080229
  Transmission Date: 20080703
  Serious: Yes (Hospitalization)
  Sender: FDA-Public Use
  Company Number: JP-BRISTOL-MYERS SQUIBB COMPANY-14049480

PATIENT
  Age: 28 Year
  Sex: Male

DRUGS (1)
  1. BARACLUDE [Suspect]
     Indication: HEPATITIS B
     Route: 048
     Dates: start: 20070626, end: 20071128

REACTIONS (3)
  - ABDOMINAL PAIN UPPER [None]
  - EOSINOPHIL COUNT INCREASED [None]
  - LIVER FUNCTION TEST ABNORMAL [None]
